FAERS Safety Report 5364340-4 (Version None)
Quarter: 2007Q2

REPORT INFORMATION
  Report Type: 
  Country: None (occurrence: None)
  Receive Date: 20070618
  Receipt Date: 20070607
  Transmission Date: 20071010
  Serious: Yes (Other)
  Sender: FDA-Public Use
  Company Number: GXKR2007GB03922

PATIENT
  Age: 22 Year
  Sex: Female

DRUGS (3)
  1. PIRITON(CHLORPHENAMINE MALEATE) TABLET [Suspect]
     Indication: RASH PRURITIC
     Dosage: 4 MG, ORAL
     Route: 048
     Dates: start: 20070213
  2. CHLORPHENIRAMINE (NGX) (CHLORPHENIRAMINE) UNKNOWN [Suspect]
     Indication: PRURITUS
     Dosage: 4 MG
  3. FERROUS SULPHATE (FERROUS SULFATE) UNKNOWN [Concomitant]

REACTIONS (2)
  - DRUG EXPOSURE DURING PREGNANCY [None]
  - STILLBIRTH [None]
